FAERS Safety Report 7158611-9 (Version None)
Quarter: 2010Q4

REPORT INFORMATION
  Report Type: 
  Country: None (occurrence: None)
  Receive Date: 20101214
  Receipt Date: 20100614
  Transmission Date: 20110411
  Serious: No
  Sender: FDA-Public Use
  Company Number: US-ASTRAZENECA-2010SE27678

PATIENT
  Age: 54 Year
  Sex: Male

DRUGS (8)
  1. CRESTOR [Suspect]
     Indication: HYPERCHOLESTEROLAEMIA
     Route: 048
     Dates: start: 20100101, end: 20100511
  2. CRESTOR [Suspect]
     Route: 048
     Dates: start: 20100511
  3. NIASPAN [Suspect]
     Indication: HYPERTRIGLYCERIDAEMIA
     Route: 048
     Dates: start: 20050101, end: 20070101
  4. NIASPAN [Suspect]
     Indication: HYPERCHOLESTEROLAEMIA
     Route: 048
     Dates: start: 20050101, end: 20070101
  5. NIASPAN [Suspect]
     Route: 048
     Dates: start: 20070101, end: 20100101
  6. NIASPAN [Suspect]
     Route: 048
     Dates: start: 20070101, end: 20100101
  7. NIASPAN [Suspect]
     Route: 048
     Dates: start: 20100101
  8. NIASPAN [Suspect]
     Route: 048
     Dates: start: 20100101

REACTIONS (3)
  - BLOOD TRIGLYCERIDES INCREASED [None]
  - HIGH DENSITY LIPOPROTEIN DECREASED [None]
  - LOW DENSITY LIPOPROTEIN INCREASED [None]
